FAERS Safety Report 18135707 (Version 2)
Quarter: 2021Q1

REPORT INFORMATION
  Report Type: Spontaneous
  Country: US (occurrence: US)
  Receive Date: 20200811
  Receipt Date: 20210121
  Transmission Date: 20210419
  Serious: Yes (Hospitalization, Other)
  Sender: FDA-Public Use
  Company Number: US-PURDUE-USA-2020-0160429

PATIENT
  Sex: Female

DRUGS (4)
  1. OXYCONTIN [Suspect]
     Active Substance: OXYCODONE HYDROCHLORIDE
     Indication: PAIN
     Dosage: UNK
     Route: 048
     Dates: start: 2006, end: 2015
  2. PERCOCET                           /00446701/ [Suspect]
     Active Substance: ACETAMINOPHEN\OXYCODONE HYDROCHLORIDE\OXYCODONE TEREPHTHALATE
     Indication: PAIN
     Dosage: UNK
     Route: 065
     Dates: start: 2006, end: 2015
  3. MS CONTIN [Suspect]
     Active Substance: MORPHINE SULFATE
     Indication: PAIN
     Dosage: UNK
     Route: 048
     Dates: start: 2006, end: 2015
  4. XANAX [Suspect]
     Active Substance: ALPRAZOLAM
     Indication: PAIN
     Dosage: UNK
     Route: 065
     Dates: start: 2006, end: 2015

REACTIONS (23)
  - Capillary fragility [Unknown]
  - Depression [Unknown]
  - Cardiac disorder [Unknown]
  - Neck injury [Unknown]
  - Road traffic accident [Unknown]
  - Overdose [Unknown]
  - Dependence [Unknown]
  - Withdrawal syndrome [Unknown]
  - Cognitive disorder [Unknown]
  - Somnolence [Unknown]
  - Hospitalisation [Unknown]
  - Suicide attempt [Unknown]
  - Memory impairment [Unknown]
  - Pain [Unknown]
  - Product prescribing issue [Unknown]
  - Amnesia [Unknown]
  - Feeling of despair [Unknown]
  - Hypertension [Unknown]
  - Joint injury [Unknown]
  - Anxiety [Unknown]
  - Unevaluable event [Unknown]
  - Back injury [Unknown]
  - Limb injury [Unknown]
